FAERS Safety Report 13610969 (Version 1)
Quarter: 2017Q2

REPORT INFORMATION
  Report Type: Report from Study
  Country: ES (occurrence: ES)
  Receive Date: 20170605
  Receipt Date: 20170605
  Transmission Date: 20170830
  Serious: Yes (Hospitalization)
  Sender: FDA-Public Use
  Company Number: PHHO2017ES007371

PATIENT
  Age: 54 Year
  Sex: Male
  Weight: 94 kg

DRUGS (3)
  1. LBH589 [Suspect]
     Active Substance: PANOBINOSTAT
     Indication: COLORECTAL CANCER METASTATIC
     Dosage: 10 MG, TIW
     Route: 048
     Dates: start: 20170403, end: 20170503
  2. PDR001 [Suspect]
     Active Substance: INVESTIGATIONAL PRODUCT
     Indication: COLORECTAL CANCER METASTATIC
     Dosage: 400 MG, QW4
     Route: 042
     Dates: start: 20170403, end: 20170403
  3. AUGMENTINE [Concomitant]
     Active Substance: AMOXICILLIN\CLAVULANATE POTASSIUM
     Indication: LOWER RESPIRATORY TRACT INFECTION
     Dosage: UNK
     Route: 048
     Dates: start: 201704

REACTIONS (2)
  - Haemoptysis [Recovered/Resolved]
  - Epistaxis [Recovered/Resolved]

NARRATIVE: CASE EVENT DATE: 20170425
